FAERS Safety Report 7563752-8 (Version None)
Quarter: 2011Q2

REPORT INFORMATION
  Report Type: 
  Country: None (occurrence: None)
  Receive Date: 20110622
  Receipt Date: 20110614
  Transmission Date: 20111010
  Serious: Yes (Hospitalization)
  Sender: FDA-Public Use
  Company Number: US-MERCK-1106USA01810

PATIENT
  Age: 48 Year
  Sex: Male

DRUGS (10)
  1. ZOCOR [Suspect]
     Route: 048
     Dates: start: 20100101
  2. LORAZEPAM [Concomitant]
     Route: 065
  3. OMEPRAZOLE [Concomitant]
     Route: 065
  4. LOSARTAN POTASSIUM [Concomitant]
     Route: 065
  5. PLAVIX [Concomitant]
     Route: 065
  6. NITRO-DUR [Concomitant]
     Route: 065
  7. URSODIOL [Concomitant]
     Route: 065
  8. ASPIRIN [Concomitant]
     Route: 065
  9. XANAX [Concomitant]
     Route: 065
  10. METOPROLOL [Concomitant]
     Route: 065

REACTIONS (6)
  - DYSPNOEA [None]
  - SPEECH DISORDER [None]
  - CHEST PAIN [None]
  - PAIN IN EXTREMITY [None]
  - ANGIOPATHY [None]
  - MUSCULAR WEAKNESS [None]
